FAERS Safety Report 5261440-4 (Version None)
Quarter: 2007Q1

REPORT INFORMATION
  Report Type: 
  Country: None (occurrence: None)
  Receive Date: 20061218
  Receipt Date: 20060915
  Transmission Date: 20070707
  Serious: No
  Sender: FDA-Public Use
  Company Number: US200609004145

PATIENT
  Age: 63 Year
  Sex: Male

DRUGS (3)
  1. CIALIS [Suspect]
     Dosage: SEE IMAGE
     Dates: start: 20060101
  2. CIALIS [Suspect]
     Dosage: SEE IMAGE
     Dates: start: 20060101
  3. VIAGRA / SWE/ (SILDENAFIL CITRATE) [Concomitant]

REACTIONS (2)
  - DRUG INEFFECTIVE [None]
  - HEADACHE [None]
